FAERS Safety Report 13859483 (Version 1)
Quarter: 2017Q3

REPORT INFORMATION
  Report Type: Spontaneous
  Country: US (occurrence: US)
  Receive Date: 20170811
  Receipt Date: 20170811
  Transmission Date: 20171127
  Serious: No
  Sender: FDA-Public Use
  Company Number: US-PFIZER INC-2017347756

PATIENT
  Sex: Female

DRUGS (2)
  1. METHOTREXATE SODIUM. [Suspect]
     Active Substance: METHOTREXATE SODIUM
     Dosage: UNK
  2. XELJANZ XR [Suspect]
     Active Substance: TOFACITINIB CITRATE
     Dosage: 11 MG, UNK

REACTIONS (8)
  - Oedema peripheral [Unknown]
  - Pain in extremity [Unknown]
  - Petechiae [Unknown]
  - Pain [Unknown]
  - Tachycardia [Not Recovered/Not Resolved]
  - Cough [Unknown]
  - Skin abrasion [Unknown]
  - Arthralgia [Unknown]
